FAERS Safety Report 15725603 (Version 1)
Quarter: 2018Q4

REPORT INFORMATION
  Report Type: Report from Study
  Country: None (occurrence: CA)
  Receive Date: 20181215
  Receipt Date: 20181215
  Transmission Date: 20190205
  Serious: Yes (Other)
  Sender: FDA-Public Use
  Company Number: CA-ABBVIE-18K-028-2467299-00

PATIENT
  Sex: Female

DRUGS (3)
  1. HUMIRA [Suspect]
     Active Substance: ADALIMUMAB
     Indication: CROHN^S DISEASE
     Route: 058
     Dates: start: 20171014
  2. LOPERAMIDE [Concomitant]
     Active Substance: LOPERAMIDE
     Indication: CROHN^S DISEASE
     Dates: start: 2018
  3. LOPERAMIDE [Concomitant]
     Active Substance: LOPERAMIDE
     Indication: FEELING ABNORMAL

REACTIONS (8)
  - Anal incontinence [Not Recovered/Not Resolved]
  - Depressed mood [Not Recovered/Not Resolved]
  - Frequent bowel movements [Not Recovered/Not Resolved]
  - Grief reaction [Unknown]
  - Feeling abnormal [Not Recovered/Not Resolved]
  - Fear [Unknown]
  - Suicidal ideation [Recovered/Resolved]
  - Stress [Not Recovered/Not Resolved]

NARRATIVE: CASE EVENT DATE: 2018
